FAERS Safety Report 5297709-7 (Version None)
Quarter: 2007Q2

REPORT INFORMATION
  Report Type: 
  Country: None (occurrence: None)
  Receive Date: 20070412
  Receipt Date: 20070412
  Transmission Date: 20071010
  Serious: Yes (Death)
  Sender: FDA-Public Use
  Company Number: None

PATIENT
  Sex: Male
  Weight: 95.2554 kg

DRUGS (3)
  1. VELCADE [Suspect]
     Indication: NON-SMALL CELL LUNG CANCER
     Dosage: 1.3MG/M2 D1,D8 Q21DAY IV
     Route: 042
     Dates: start: 20070226, end: 20070305
  2. GEMCITABINE HCL [Suspect]
     Dosage: 1000MG/M2 D1,D8 Q21DAY IV
     Route: 042
     Dates: start: 20070226, end: 20070305
  3. CARBOPLATIN [Suspect]
     Indication: NON-SMALL CELL LUNG CANCER
     Dosage: 5.0 AUC DAY 1 Q 21 DAYS IV
     Route: 042
     Dates: start: 20070226

REACTIONS (9)
  - BRONCHOSPASM [None]
  - DISEASE PROGRESSION [None]
  - HAEMOGLOBIN ABNORMAL [None]
  - HAEMOPTYSIS [None]
  - PERFORMANCE STATUS DECREASED [None]
  - PLATELET COUNT ABNORMAL [None]
  - PULMONARY EMBOLISM [None]
  - PULMONARY HAEMORRHAGE [None]
  - PYREXIA [None]
